FAERS Safety Report 23292608 (Version 1)
Quarter: 2023Q4

REPORT INFORMATION
  Report Type: Spontaneous
  Country: US (occurrence: None)
  Receive Date: 20231212
  Receipt Date: 20231212
  Transmission Date: 20240110
  Serious: Yes (Other)
  Sender: FDA-Public Use
  Company Number: None

PATIENT
  Sex: 0

DRUGS (1)
  1. SUBLOCADE [Suspect]
     Active Substance: BUPRENORPHINE
     Indication: Dependence
     Dates: start: 20230912, end: 20231012

REACTIONS (3)
  - Alopecia [None]
  - Fear of disease [None]
  - Inability to afford medication [None]

NARRATIVE: CASE EVENT DATE: 20230930
